FAERS Safety Report 4459083-5 (Version None)
Quarter: 2004Q3

REPORT INFORMATION
  Report Type: 
  Country: None (occurrence: None)
  Receive Date: 20040927
  Receipt Date: 20040920
  Transmission Date: 20050211
  Serious: Yes (Hospitalization)
  Sender: FDA-Public Use
  Company Number: AU-JNJFOC-20040906277

PATIENT
  Sex: Female
  Weight: 55 kg

DRUGS (1)
  1. REMINYL [Suspect]
     Route: 049
     Dates: start: 20030301

REACTIONS (1)
  - CEREBROVASCULAR ACCIDENT [None]
